FAERS Safety Report 9419147 (Version 1)
Quarter: 2013Q3

REPORT INFORMATION
  Report Type: Report from Study
  Country: US (occurrence: US)
  Receive Date: 20130725
  Receipt Date: 20130725
  Transmission Date: 20140515
  Serious: Yes (Hospitalization, Other)
  Sender: FDA-Public Use
  Company Number: US-BAYER-2013-086816

PATIENT
  Sex: Female

DRUGS (2)
  1. MIRENA [Suspect]
     Dosage: 20 MCG/24HR, CONT
     Route: 015
     Dates: start: 20120530
  2. MIRENA [Suspect]
     Dosage: 20 MCG/24HR, CONT
     Route: 015
     Dates: end: 201303

REACTIONS (15)
  - Procedural pain [None]
  - Post procedural haemorrhage [None]
  - Muscle spasms [None]
  - Genital haemorrhage [None]
  - Pelvic pain [None]
  - Cyst [Recovered/Resolved]
  - Embedded device [None]
  - Complication of device removal [None]
  - Pain [None]
  - Vulvovaginal injury [None]
  - Vaginal haemorrhage [None]
  - Pelvic discomfort [None]
  - Dizziness [None]
  - Myalgia [None]
  - Myositis [None]
